FAERS Safety Report 4951440-3 (Version None)
Quarter: 2006Q1

REPORT INFORMATION
  Report Type: 
  Country: None (occurrence: None)
  Receive Date: 20060323
  Receipt Date: 20060313
  Transmission Date: 20060701
  Serious: Yes (Other)
  Sender: FDA-Public Use
  Company Number: PHEH2006US03408

PATIENT
  Sex: Female

DRUGS (1)
  1. FORADIL [Suspect]
     Dosage: UNK, UNK
     Dates: start: 20050301

REACTIONS (2)
  - CANDIDIASIS [None]
  - LUNG NEOPLASM [None]
